FAERS Safety Report 24763789 (Version 1)
Quarter: 2024Q4

REPORT INFORMATION
  Report Type: Report from Study
  Country: US (occurrence: US)
  Receive Date: 20241223
  Receipt Date: 20241223
  Transmission Date: 20250114
  Serious: No
  Sender: ACADIA PHARMACEUTICALS
  Company Number: US-ACADIA PHARMACEUTICALS INC.-ACA-2024-PIM-008322

PATIENT
  Sex: Male

DRUGS (5)
  1. NUPLAZID [Suspect]
     Active Substance: PIMAVANSERIN TARTRATE
     Indication: Parkinson^s disease psychosis
     Dosage: 34 MILLIGRAM, QD
     Route: 048
     Dates: start: 202207
  2. NUPLAZID [Suspect]
     Active Substance: PIMAVANSERIN TARTRATE
     Indication: Parkinson^s disease
  3. NOURIANZ [Suspect]
     Active Substance: ISTRADEFYLLINE
     Indication: Parkinsonism
  4. NOURIANZ [Suspect]
     Active Substance: ISTRADEFYLLINE
     Indication: Hallucination
  5. NOURIANZ [Suspect]
     Active Substance: ISTRADEFYLLINE
     Indication: Salivary gland disorder

REACTIONS (3)
  - Musculoskeletal stiffness [Unknown]
  - Feeling abnormal [Unknown]
  - Memory impairment [Not Recovered/Not Resolved]
